FAERS Safety Report 6330816-6 (Version None)
Quarter: 2009Q3

REPORT INFORMATION
  Report Type: 
  Country: None (occurrence: None)
  Receive Date: 20090827
  Receipt Date: 20090824
  Transmission Date: 20100115
  Serious: Yes (Death, Hospitalization)
  Sender: FDA-Public Use
  Company Number: PHEH2009US09640

PATIENT
  Sex: Male
  Weight: 29.2 kg

DRUGS (6)
  1. EXJADE [Suspect]
     Indication: SICKLE CELL ANAEMIA
     Dosage: 1000 MG DAILY
     Dates: start: 20071201, end: 20090809
  2. EXJADE [Suspect]
     Indication: IRON OVERLOAD
     Dosage: 750 MG, QD
     Dates: start: 20090809, end: 20090811
  3. BACLOFEN [Concomitant]
     Indication: MUSCLE SPASTICITY
     Dosage: UNK, UNK
     Route: 037
     Dates: start: 20040101
  4. ATENOLOL [Concomitant]
     Dosage: 25 MG, BID
     Dates: start: 20010101
  5. PENICILLIN NOS [Concomitant]
     Dosage: 250 MG, BID
  6. HYDROXYUREA [Concomitant]
     Dosage: 900 MG, QD

REACTIONS (8)
  - ANOXIC ENCEPHALOPATHY [None]
  - BLOOD BILIRUBIN INCREASED [None]
  - BLOOD UREA INCREASED [None]
  - HAEMOGLOBIN DECREASED [None]
  - HYPOTENSION [None]
  - NEUTROPENIA [None]
  - SICKLE CELL ANAEMIA WITH CRISIS [None]
  - TRANSAMINASES INCREASED [None]
